FAERS Safety Report 4628687-9 (Version None)
Quarter: 2005Q1

REPORT INFORMATION
  Report Type: 
  Country: None (occurrence: None)
  Receive Date: 20050107
  Receipt Date: 20041004
  Transmission Date: 20050727
  Serious: No
  Sender: FDA-Public Use
  Company Number: 235049K04USA

PATIENT
  Age: 43 Year
  Sex: Female

DRUGS (4)
  1. REBIF [Suspect]
     Indication: MULTIPLE SCLEROSIS
     Dosage: 22 MCG, 3 IN 1 WEEKS,
     Dates: start: 20040714
  2. RANITIDINE [Concomitant]
  3. AMANTADINE (AMANTADINE) [Concomitant]
  4. VIOXX [Concomitant]

REACTIONS (1)
  - RECTAL HAEMORRHAGE [None]
